FAERS Safety Report 4925616-5 (Version None)
Quarter: 2006Q1

REPORT INFORMATION
  Report Type: 
  Country: None (occurrence: None)
  Receive Date: 20060228
  Receipt Date: 20050107
  Transmission Date: 20060701
  Serious: No
  Sender: FDA-Public Use
  Company Number: US-GLAXOSMITHKLINE-A0539849A

PATIENT
  Age: 30 Year
  Sex: Female
  Weight: 80.9 kg

DRUGS (5)
  1. LAMICTAL [Suspect]
     Indication: BIPOLAR DISORDER
     Dosage: 75MG PER DAY
     Route: 048
  2. DEMULEN 1/35-21 [Concomitant]
  3. HYDROXYZINE [Concomitant]
     Indication: ACNE
     Dosage: 25MG THREE TIMES PER DAY
     Route: 048
  4. BACTRIM [Concomitant]
     Dosage: 1TAB TWICE PER DAY
     Route: 048
  5. CITALOPRAM HYDROBROMIDE [Concomitant]
     Dosage: 40MG PER DAY
     Route: 048

REACTIONS (1)
  - TREMOR [None]
